FAERS Safety Report 23536286 (Version 5)
Quarter: 2025Q2

REPORT INFORMATION
  Report Type: Spontaneous
  Country: US (occurrence: US)
  Receive Date: 20240219
  Receipt Date: 20250407
  Transmission Date: 20250716
  Serious: Yes (Other)
  Sender: SANOFI AVENTIS
  Company Number: US-SA-SAC20240215001127

PATIENT
  Age: 5 Year
  Sex: Female
  Weight: 21.27 kg

DRUGS (4)
  1. DUPIXENT [Suspect]
     Active Substance: DUPILUMAB
     Indication: Eosinophilic oesophagitis
     Dosage: 300 MG, QM
     Dates: start: 20230815, end: 202311
  2. DUPIXENT [Suspect]
     Active Substance: DUPILUMAB
     Indication: Eosinophilic oesophagitis
     Dosage: 200 MG, QOW
     Route: 058
     Dates: start: 202311, end: 202410
  3. DUPIXENT [Suspect]
     Active Substance: DUPILUMAB
     Dates: start: 202501
  4. HIZENTRA [Concomitant]
     Active Substance: HUMAN IMMUNOGLOBULIN G

REACTIONS (7)
  - Hypereosinophilic syndrome [Recovering/Resolving]
  - Pyrexia [Recovered/Resolved]
  - Polyuria [Unknown]
  - Nasopharyngitis [Unknown]
  - Pain in extremity [Unknown]
  - Accidental exposure to product [Unknown]
  - Exposure via skin contact [Unknown]

NARRATIVE: CASE EVENT DATE: 20240212
